FAERS Safety Report 6709714-1 (Version None)
Quarter: 2010Q2

REPORT INFORMATION
  Report Type: 
  Country: None (occurrence: None)
  Receive Date: 20100504
  Receipt Date: 20100426
  Transmission Date: 20101027
  Serious: Yes (Other)
  Sender: FDA-Public Use
  Company Number: FR-JNJFOC-20100402319

PATIENT
  Sex: Male
  Weight: 65 kg

DRUGS (1)
  1. RISPERDAL CONSTA [Suspect]
     Indication: PSYCHOTIC DISORDER
     Route: 030

REACTIONS (6)
  - HAEMATOMA [None]
  - LIVEDO RETICULARIS [None]
  - OEDEMA [None]
  - PETECHIAE [None]
  - PURPURA [None]
  - WHITE BLOOD CELL COUNT INCREASED [None]
